FAERS Safety Report 16579617 (Version 1)
Quarter: 2019Q3

REPORT INFORMATION
  Report Type: Spontaneous
  Country: US (occurrence: US)
  Receive Date: 20190716
  Receipt Date: 20190716
  Transmission Date: 20191004
  Serious: No
  Sender: FDA-Public Use
  Company Number: US-HORIZON-DUE-0411-2019

PATIENT
  Age: 53 Year
  Sex: Female

DRUGS (1)
  1. DUEXIS [Suspect]
     Active Substance: FAMOTIDINE\IBUPROFEN
     Indication: DENTAL DISCOMFORT
     Dosage: 1 TABLET AS NEEDED FOR PAIN, SOMETIMES 2 TABLETS
     Dates: start: 201701

REACTIONS (2)
  - Dental implantation [Unknown]
  - Off label use [Unknown]

NARRATIVE: CASE EVENT DATE: 201701
